FAERS Safety Report 12213350 (Version 1)
Quarter: 2016Q1

REPORT INFORMATION
  Report Type: Spontaneous
  Country: US (occurrence: None)
  Receive Date: 20160325
  Receipt Date: 20160325
  Transmission Date: 20160526
  Serious: Yes (Other)
  Sender: FDA-Public Use
  Company Number: None

PATIENT
  Age: 21 Year
  Sex: Female
  Weight: 63.5 kg

DRUGS (36)
  1. RISPERIDONE. [Concomitant]
     Active Substance: RISPERIDONE
  2. MAGNESIUM [Concomitant]
     Active Substance: MAGNESIUM
  3. PROPRANOLOL [Concomitant]
     Active Substance: PROPRANOLOL\PROPRANOLOL HYDROCHLORIDE
  4. ELETRIPTAN [Concomitant]
     Active Substance: ELETRIPTAN
  5. GABAPENTIN. [Concomitant]
     Active Substance: GABAPENTIN
  6. CYCLOBENZAPRINE [Concomitant]
     Active Substance: CYCLOBENZAPRINE
  7. MELATONIN [Concomitant]
     Active Substance: MELATONIN
  8. BENADRYL [Concomitant]
     Active Substance: DIPHENHYDRAMINE HYDROCHLORIDE
  9. BIOTIN [Concomitant]
     Active Substance: BIOTIN
  10. MACROBID [Concomitant]
     Active Substance: NITROFURANTOIN\NITROFURANTOIN MONOHYDRATE
  11. COQ10 [Concomitant]
     Active Substance: UBIDECARENONE
  12. BIOPERINE [Concomitant]
  13. EVENING PRIMROSE OIL [Concomitant]
     Active Substance: EVENING PRIMROSE OIL
  14. VITAMIN K2 (MK-7) [Concomitant]
  15. EXCEDRIN [Concomitant]
     Active Substance: ACETAMINOPHEN\ASPIRIN\CAFFEINE
  16. MIDODRINE [Concomitant]
     Active Substance: MIDODRINE
  17. DIMENHYDRINATE. [Concomitant]
     Active Substance: DIMENHYDRINATE
  18. PROBIOTIC [Concomitant]
     Active Substance: PROBIOTICS NOS
  19. LITHIUM CARBONATE. [Concomitant]
     Active Substance: LITHIUM CARBONATE
  20. VERAPAMIL [Concomitant]
     Active Substance: VERAPAMIL HYDROCHLORIDE
  21. SEROQUEL [Concomitant]
     Active Substance: QUETIAPINE FUMARATE
  22. LACTASE [Concomitant]
     Active Substance: LACTASE
  23. VITAMIN D3 [Concomitant]
     Active Substance: CHOLECALCIFEROL
  24. ASPIRIN. [Concomitant]
     Active Substance: ASPIRIN
  25. PAMPRIN MULTI-SYMPTOM [Concomitant]
  26. VICKS NYQUIL [Concomitant]
     Active Substance: ACETAMINOPHEN\DEXTROMETHORPHAN HYDROBROMIDE\DOXYLAMINE SUCCINATE
  27. PARAGARD T 380A [Suspect]
     Active Substance: COPPER
     Dates: start: 20150417, end: 20150730
  28. PHENAZOPYRIDINE. [Concomitant]
     Active Substance: PHENAZOPYRIDINE
  29. L-METHYLFOLATE CALCIUM [Concomitant]
     Active Substance: LEVOMEFOLATE CALCIUM
  30. FISH OIL [Concomitant]
     Active Substance: FISH OIL
  31. VITAMIN B6 [Concomitant]
     Active Substance: PYRIDOXINE HYDROCHLORIDE
  32. QUETIAPINE [Concomitant]
     Active Substance: QUETIAPINE
  33. RIBOFLAVIN [Concomitant]
     Active Substance: RIBOFLAVIN
  34. CRANBERRY. [Concomitant]
     Active Substance: CRANBERRY
  35. POTASSIUM [Concomitant]
     Active Substance: POTASSIUM
  36. DOCUSATE SODIUM. [Concomitant]
     Active Substance: DOCUSATE SODIUM

REACTIONS (5)
  - Muscle spasms [None]
  - Haemorrhage [None]
  - Post herpetic neuralgia [None]
  - Uterine pain [None]
  - Herpes zoster [None]

NARRATIVE: CASE EVENT DATE: 20150417
